FAERS Safety Report 23117120 (Version 2)
Quarter: 2023Q4

REPORT INFORMATION
  Report Type: Spontaneous
  Country: DE (occurrence: DE)
  Receive Date: 20231027
  Receipt Date: 20231110
  Transmission Date: 20240109
  Serious: Yes (Other)
  Sender: FDA-Public Use
  Company Number: DE-Laboratoires BESINS-INTERNATIONAL-2023-25780

PATIENT
  Age: 50 Year
  Sex: Female
  Weight: 68 kg

DRUGS (11)
  1. ESTRADIOL [Suspect]
     Active Substance: ESTRADIOL
     Indication: Hormone therapy
     Dosage: IN THE MORNING, ONE STROKE, FREQUENCY TIME: 1DAYS
     Route: 065
     Dates: start: 20230711, end: 2023
  2. ESTRADIOL [Suspect]
     Active Substance: ESTRADIOL
     Dosage: IN THE MORNING, FREQUENCY TIME: 1DAYS
     Route: 065
     Dates: start: 20230817
  3. ESTRADIOL [Suspect]
     Active Substance: ESTRADIOL
     Dosage: IN THE EVENING, FREQUENCY TIME: 1DAYS
     Route: 065
     Dates: start: 20230725, end: 2023
  4. PROGESTERONE [Suspect]
     Active Substance: PROGESTERONE
     Indication: Hormone therapy
     Dosage: 200MG IN EVENING, FREQUENCY TIME: 1DAYS
     Route: 065
     Dates: start: 20230711, end: 2023
  5. PROGESTERONE [Suspect]
     Active Substance: PROGESTERONE
     Dosage: FREQUENCY TIME: 1DAYS
     Route: 065
     Dates: start: 20230725, end: 2023
  6. PROGESTERONE [Suspect]
     Active Substance: PROGESTERONE
     Dosage: 200 MG
     Route: 065
     Dates: start: 202308
  7. OPIPRAMOL [Concomitant]
     Active Substance: OPIPRAMOL
     Indication: Depression
     Dosage: IN THE EVENING, FREQUENCY TIME: 1DAYS, THERAPY START DATE: ASKED BUT UNKNOWN
  8. OPIPRAMOL [Concomitant]
     Active Substance: OPIPRAMOL
     Indication: Panic attack
  9. RAMIPRIL [Concomitant]
     Active Substance: RAMIPRIL
     Indication: Hypertension
     Dosage: IN THE MORNING (2.5 UNIT NOT REPORTED), FREQUENCY TIME: 1DAYS, THERAPY START DATE: ASKED BUT UNKNOWN
  10. BISOPROLOL [Concomitant]
     Active Substance: BISOPROLOL\BISOPROLOL FUMARATE
     Indication: Hypertension
     Dosage: 1.25 MG, FREQUENCY TIME: 1DAYS, THERAPY START DATE: ASKED BUT UNKNOWN
  11. BISOPROLOL [Concomitant]
     Active Substance: BISOPROLOL\BISOPROLOL FUMARATE
     Dosage: IN THE MORNING, 2.5 UNIT NOT REPORTED, FREQUENCY TIME: 1DAYS, THERAPY START DATE: ASKED BUT UNKNOWN

REACTIONS (10)
  - Postmenopausal haemorrhage [Recovered/Resolved]
  - Fatigue [Recovering/Resolving]
  - Blood pressure decreased [Unknown]
  - Dizziness [Unknown]
  - Heart rate increased [Unknown]
  - Poor quality sleep [Recovering/Resolving]
  - Initial insomnia [Recovering/Resolving]
  - Abdominal discomfort [Unknown]
  - Unevaluable event [Unknown]
  - Insomnia [Unknown]

NARRATIVE: CASE EVENT DATE: 20230101
